FAERS Safety Report 9461641 (Version 2)
Quarter: 2013Q3

REPORT INFORMATION
  Report Type: Spontaneous
  Country: GB (occurrence: GB)
  Receive Date: 20130816
  Receipt Date: 20130927
  Transmission Date: 20140515
  Serious: Yes (Other)
  Sender: FDA-Public Use
  Company Number: GB-JNJFOC-20130805110

PATIENT
  Sex: 0

DRUGS (2)
  1. REOPRO [Suspect]
     Indication: PRODUCT USED FOR UNKNOWN INDICATION
     Dosage: BOLUS DOSE DURING SURGERY
     Route: 040
  2. EFFIENT [Suspect]
     Indication: ACUTE CORONARY SYNDROME
     Route: 048
     Dates: start: 20130806

REACTIONS (1)
  - Platelet count decreased [Not Recovered/Not Resolved]
